FAERS Safety Report 6678127-3 (Version None)
Quarter: 2010Q2

REPORT INFORMATION
  Report Type: 
  Country: None (occurrence: None)
  Receive Date: 20100412
  Receipt Date: 20090203
  Transmission Date: 20101027
  Serious: Yes (Disabling)
  Sender: FDA-Public Use
  Company Number: IT-MERCK-0902ITA00001

PATIENT
  Age: 58 Year
  Sex: Female

DRUGS (2)
  1. ZOCOR [Suspect]
     Indication: HYPERCHOLESTEROLAEMIA
     Route: 048
     Dates: start: 20070810, end: 20070825
  2. RAMIPRIL [Concomitant]
     Route: 048

REACTIONS (4)
  - ASTHENIA [None]
  - DYSARTHRIA [None]
  - DYSPHAGIA [None]
  - MOTOR NEURONE DISEASE [None]
